FAERS Safety Report 25470609 (Version 2)
Quarter: 2025Q3

REPORT INFORMATION
  Report Type: Spontaneous
  Country: TH (occurrence: TH)
  Receive Date: 20250624
  Receipt Date: 20250922
  Transmission Date: 20251020
  Serious: Yes (Other)
  Sender: BRISTOL-MYERS SQUIBB COMPANY
  Company Number: TH-BRISTOL-MYERS SQUIBB COMPANY-2025-088378

PATIENT
  Age: 54 Year
  Sex: Female

DRUGS (9)
  1. NIVOLUMAB [Suspect]
     Active Substance: NIVOLUMAB
     Indication: Metastatic renal cell carcinoma
     Dosage: CYCLE 1
     Dates: start: 20210217
  2. NIVOLUMAB [Suspect]
     Active Substance: NIVOLUMAB
  3. NIVOLUMAB [Suspect]
     Active Substance: NIVOLUMAB
     Dosage: CYCLE 1, UP TO 2 YEARS
     Dates: start: 20210512
  4. NIVOLUMAB [Suspect]
     Active Substance: NIVOLUMAB
     Dosage: CYCLE 2
     Dates: start: 20210310
  5. NIVOLUMAB [Suspect]
     Active Substance: NIVOLUMAB
  6. NELVUTAMIG [Suspect]
     Active Substance: NELVUTAMIG
     Indication: Metastatic renal cell carcinoma
     Dosage: CYCLE 1
     Dates: start: 20210217
  7. NELVUTAMIG [Suspect]
     Active Substance: NELVUTAMIG
  8. NELVUTAMIG [Suspect]
     Active Substance: NELVUTAMIG
     Dosage: CYCLE 2
     Dates: start: 20210310
  9. NELVUTAMIG [Suspect]
     Active Substance: NELVUTAMIG

REACTIONS (2)
  - Off label use [Unknown]
  - Motor dysfunction [Recovering/Resolving]

NARRATIVE: CASE EVENT DATE: 20210217
